FAERS Safety Report 20920491 (Version 1)
Quarter: 2022Q2

REPORT INFORMATION
  Report Type: Spontaneous
  Country: US (occurrence: None)
  Receive Date: 20220606
  Receipt Date: 20220606
  Transmission Date: 20220721
  Serious: Yes (Hospitalization)
  Sender: FDA-Public Use
  Company Number: None

PATIENT
  Sex: Male

DRUGS (14)
  1. ENTECAVIR [Suspect]
     Active Substance: ENTECAVIR
     Indication: Liver transplant
     Dosage: OTHER QUANTITY : 0.5MG;?FREQUENCY : AS DIRECTED;?
     Route: 048
     Dates: start: 20190118
  2. TACROLIMUS [Suspect]
     Active Substance: TACROLIMUS
     Indication: Liver transplant
  3. CARVEDILOL [Concomitant]
     Active Substance: CARVEDILOL
  4. ENTECAVIR [Concomitant]
     Active Substance: ENTECAVIR
  5. FUROSEMIDE TAB [Concomitant]
  6. HYDROCO/APAP TAB [Concomitant]
  7. JARDIANCE TAB [Concomitant]
  8. LANTUS SOLOS INJ [Concomitant]
  9. LUMIGAN SOL [Concomitant]
  10. PANTOPRAZOLE TAB [Concomitant]
  11. PRAVASTATIN [Concomitant]
     Active Substance: PRAVASTATIN
  12. PREDNISOLONE ACETATE [Concomitant]
     Active Substance: PREDNISOLONE ACETATE
  13. TACROLIMUS [Concomitant]
     Active Substance: TACROLIMUS
  14. VERAPAMIL TAB [Concomitant]

REACTIONS (1)
  - Illness [None]
